FAERS Safety Report 5571854-0 (Version None)
Quarter: 2007Q4

REPORT INFORMATION
  Report Type: 
  Country: None (occurrence: None)
  Receive Date: 20071221
  Receipt Date: 20071218
  Transmission Date: 20080405
  Serious: Yes (Death)
  Sender: FDA-Public Use
  Company Number: US-BRISTOL-MYERS SQUIBB COMPANY-14016430

PATIENT
  Age: 57 Year
  Sex: Female

DRUGS (5)
  1. IXEMPRA [Suspect]
     Indication: BREAST CANCER METASTATIC
     Dates: start: 20071025
  2. XELODA [Suspect]
     Indication: BREAST CANCER METASTATIC
     Dates: start: 20071025
  3. OXYCODONE HCL [Concomitant]
  4. RESTORIL [Concomitant]
  5. SENOKOT [Concomitant]

REACTIONS (1)
  - MALIGNANT NEOPLASM PROGRESSION [None]
